FAERS Safety Report 5768124-4 (Version None)
Quarter: 2008Q2

REPORT INFORMATION
  Report Type: 
  Country: None (occurrence: None)
  Receive Date: 20080612
  Receipt Date: 20080602
  Transmission Date: 20081010
  Serious: Yes (Other)
  Sender: FDA-Public Use
  Company Number: GB-ELI_LILLY_AND_COMPANY-GB200803000555

PATIENT
  Age: 15 Year
  Sex: Male
  Weight: 51 kg

DRUGS (3)
  1. STRATTERA [Suspect]
     Indication: ATTENTION DEFICIT/HYPERACTIVITY DISORDER
     Dosage: 18 MG, UNK
     Route: 048
     Dates: start: 20071201, end: 20080220
  2. METHYLPHENIDATE HCL [Concomitant]
     Indication: ATTENTION DEFICIT/HYPERACTIVITY DISORDER
     Dosage: 25 MG, 2/1 DAYS
     Route: 048
     Dates: start: 20020101
  3. ANTIBIOTICS [Concomitant]
     Indication: EAR INFECTION
     Dosage: UNK, UNKNOWN
     Route: 065
     Dates: end: 20080217

REACTIONS (8)
  - FLUSHING [None]
  - HEADACHE [None]
  - MUSCULOSKELETAL STIFFNESS [None]
  - PERIPHERAL COLDNESS [None]
  - PHOTOPHOBIA [None]
  - RASH [None]
  - TACHYCARDIA [None]
  - TIC [None]
